FAERS Safety Report 9000710 (Version 2)
Quarter: 2013Q1

REPORT INFORMATION
  Report Type: Spontaneous
  Country: IT (occurrence: None)
  Receive Date: 20121226
  Receipt Date: 20130129
  Transmission Date: 20140127
  Serious: Yes (Other)
  Sender: FDA-Public Use
  Company Number: 2012MPI00583

PATIENT
  Age: 12 Year
  Sex: Male
  Weight: 59 kg

DRUGS (1)
  1. BRENTUXIMAB VEDOTIN [Suspect]
     Indication: HODGKIN^S DISEASE RECURRENT
     Dosage: 96.5 MG, Q12D, INTRAVENOUS
     Route: 042
     Dates: start: 20120830, end: 20121121

REACTIONS (11)
  - Bronchospasm [None]
  - Urticaria [None]
  - Laryngeal oedema [None]
  - Rhinalgia [None]
  - Respiratory disorder [None]
  - Orbital oedema [None]
  - Cough [None]
  - Anaphylactic reaction [None]
  - Nausea [None]
  - Abdominal pain upper [None]
  - Diarrhoea [None]
